FAERS Safety Report 8363774-3 (Version None)
Quarter: 2012Q2

REPORT INFORMATION
  Report Type: 
  Country: None (occurrence: None)
  Receive Date: 20120515
  Receipt Date: 20120515
  Transmission Date: 20120825
  Serious: Yes (Other)
  Sender: FDA-Public Use
  Company Number: None

PATIENT
  Age: 24 Year
  Sex: Female
  Weight: 97.7 kg

DRUGS (2)
  1. ZYRTEC [Suspect]
     Indication: SEASONAL ALLERGY
     Dosage: ONE 10 MG CAPSULE DAILY ORAL
     Route: 048
     Dates: start: 20110501
  2. ZYRTEC [Suspect]
     Indication: SEASONAL ALLERGY
     Dosage: ONE 10 MG CAPSULE DAILY ORAL
     Route: 048
     Dates: start: 20110601

REACTIONS (2)
  - DEPRESSION [None]
  - SUICIDAL IDEATION [None]
